FAERS Safety Report 25878883 (Version 2)
Quarter: 2025Q4

REPORT INFORMATION
  Report Type: Spontaneous
  Country: JP (occurrence: JP)
  Receive Date: 20251003
  Receipt Date: 20251009
  Transmission Date: 20260118
  Serious: Yes (Death, Hospitalization, Other)
  Sender: BRISTOL-MYERS SQUIBB COMPANY
  Company Number: JP-BRISTOL-MYERS SQUIBB COMPANY-2025-132005

PATIENT
  Age: 75 Year
  Sex: Male
  Weight: 100 kg

DRUGS (21)
  1. YERVOY [Suspect]
     Active Substance: IPILIMUMAB
     Indication: Renal cell carcinoma
     Dosage: 1ST COURSE
     Dates: start: 20241126, end: 20241126
  2. YERVOY [Suspect]
     Active Substance: IPILIMUMAB
     Dosage: 2ND COURSE
     Dates: start: 20241223, end: 20241223
  3. YERVOY [Suspect]
     Active Substance: IPILIMUMAB
     Dosage: 4TH COURSE
     Dates: start: 20250522, end: 20250522
  4. YERVOY [Suspect]
     Active Substance: IPILIMUMAB
     Dosage: 3RD COURSE
     Dates: start: 2025, end: 2025
  5. OPDIVO [Suspect]
     Active Substance: NIVOLUMAB
     Indication: Renal cell carcinoma
     Dosage: 1ST COURSE
     Dates: start: 20241126, end: 20241126
  6. OPDIVO [Suspect]
     Active Substance: NIVOLUMAB
     Dosage: 2ND COURSE
     Dates: start: 20241223, end: 20241223
  7. OPDIVO [Suspect]
     Active Substance: NIVOLUMAB
     Dosage: 4TH COURSE
     Dates: start: 20250522, end: 20250522
  8. OPDIVO [Suspect]
     Active Substance: NIVOLUMAB
     Dosage: 3RD COURSE
     Dates: start: 2025, end: 2025
  9. CELLCEPT [Suspect]
     Active Substance: MYCOPHENOLATE MOFETIL
     Indication: Immune-mediated arthritis
     Dates: start: 20250701, end: 20250702
  10. CELLCEPT [Suspect]
     Active Substance: MYCOPHENOLATE MOFETIL
     Indication: Immune-mediated hepatitis
  11. RABEPRAZOLE [Concomitant]
     Active Substance: RABEPRAZOLE
     Indication: Product used for unknown indication
  12. CILNIDIPINE [Concomitant]
     Active Substance: CILNIDIPINE
     Indication: Product used for unknown indication
  13. TRAMADOL [Concomitant]
     Active Substance: TRAMADOL
     Indication: Product used for unknown indication
  14. MIYA-BM [Concomitant]
     Active Substance: CLOSTRIDIUM BUTYRICUM SPORES STRAIN M-55
     Indication: Product used for unknown indication
  15. PREDONINE [Concomitant]
     Active Substance: PREDNISOLONE
     Indication: Product used for unknown indication
  16. ATOVAQUONE [Concomitant]
     Active Substance: ATOVAQUONE
     Indication: Product used for unknown indication
  17. SILODOSIN [Concomitant]
     Active Substance: SILODOSIN
     Indication: Product used for unknown indication
  18. ALLELOCK [Concomitant]
     Active Substance: OLOPATADINE HYDROCHLORIDE
     Indication: Product used for unknown indication
  19. RUPAFIN [Concomitant]
     Active Substance: RUPATADINE FUMARATE
     Indication: Product used for unknown indication
  20. CLOBETASOL [Concomitant]
     Active Substance: CLOBETASOL
     Indication: Product used for unknown indication
  21. WHITE PETROLATUM [Concomitant]
     Active Substance: PETROLATUM
     Indication: Product used for unknown indication

REACTIONS (5)
  - Hepatic failure [Fatal]
  - Diarrhoea [Unknown]
  - Immune-mediated arthritis [Unknown]
  - Immune-mediated hepatitis [Fatal]
  - Myelosuppression [Unknown]

NARRATIVE: CASE EVENT DATE: 20250612
